FAERS Safety Report 17482798 (Version 1)
Quarter: 2020Q1

REPORT INFORMATION
  Report Type: Spontaneous
  Country: US (occurrence: US)
  Receive Date: 20200302
  Receipt Date: 20200302
  Transmission Date: 20200409
  Serious: Yes (Other)
  Sender: FDA-Public Use
  Company Number: US-APOTEX-2020AP008134

PATIENT
  Age: 63 Year
  Sex: Female

DRUGS (1)
  1. ATORVASTATIN [Suspect]
     Active Substance: ATORVASTATIN
     Indication: CEREBROVASCULAR ACCIDENT
     Dosage: UNK
     Route: 065

REACTIONS (3)
  - Overlap syndrome [Unknown]
  - Drug-induced liver injury [Recovered/Resolved]
  - Cholangitis sclerosing [Unknown]
